FAERS Safety Report 5205290-3 (Version None)
Quarter: 2006Q4

REPORT INFORMATION
  Report Type: 
  Country: None (occurrence: None)
  Receive Date: 20061027
  Receipt Date: 20060217
  Transmission Date: 20070319
  Serious: Yes (Other)
  Sender: FDA-Public Use
  Company Number: HQWYE162516MAR05

PATIENT
  Age: 57 Year
  Sex: Female
  Weight: 79.45 kg

DRUGS (5)
  1. PREMARIN [Suspect]
     Indication: ABDOMINAL DISTENSION
     Dosage: ORAL
     Route: 048
     Dates: start: 19910101, end: 19960101
  2. PREMARIN [Suspect]
     Indication: HOT FLUSH
     Dosage: ORAL
     Route: 048
     Dates: start: 19910101, end: 19960101
  3. PREMARIN [Suspect]
     Indication: MEMORY IMPAIRMENT
     Dosage: ORAL
     Route: 048
     Dates: start: 19910101, end: 19960101
  4. ASPIRIN [Concomitant]
  5. CYCRIN [Suspect]

REACTIONS (1)
  - BREAST CANCER [None]
